FAERS Safety Report 18615414 (Version 1)
Quarter: 2020Q4

REPORT INFORMATION
  Report Type: Spontaneous
  Country: JP (occurrence: JP)
  Receive Date: 20201215
  Receipt Date: 20201215
  Transmission Date: 20210114
  Serious: Yes (Death, Hospitalization, Other)
  Sender: FDA-Public Use
  Company Number: JP-009507513-2012JPN001050J

PATIENT
  Age: 71 Year
  Sex: Male

DRUGS (1)
  1. KEYTRUDA [Suspect]
     Active Substance: PEMBROLIZUMAB
     Indication: NON-SMALL CELL LUNG CANCER STAGE IV
     Dosage: 200 MILLIGRAM, Q3W
     Route: 041
     Dates: start: 20201203, end: 20201203

REACTIONS (5)
  - Myalgia [Not Recovered/Not Resolved]
  - Bacterial infection [Unknown]
  - Pyrexia [Unknown]
  - Cardiomyopathy [Fatal]
  - Rhabdomyolysis [Unknown]

NARRATIVE: CASE EVENT DATE: 202012
